FAERS Safety Report 9858487 (Version 1)
Quarter: 2014Q1

REPORT INFORMATION
  Report Type: Spontaneous
  Country: US (occurrence: US)
  Receive Date: 20140131
  Receipt Date: 20140131
  Transmission Date: 20141002
  Serious: Yes (Hospitalization, Other)
  Sender: FDA-Public Use
  Company Number: US-TEVA-459522USA

PATIENT
  Age: 53 Year
  Sex: Female

DRUGS (10)
  1. SUMATRIPTAN [Suspect]
     Indication: MIGRAINE
     Dosage: 6MG
     Route: 058
  2. SUMATRIPTAN [Suspect]
     Indication: MIGRAINE
     Dosage: 100MG
     Route: 065
  3. SUMATRIPTAN [Suspect]
     Indication: MIGRAINE
     Dosage: 50-100MG AT MIGRAINE ONSET
     Route: 048
  4. ALMOTRIPTAN [Suspect]
     Indication: MIGRAINE
     Dosage: ONE-HALF TO ONE 12.5MG TABLET AT MIGRAINE ONSET
     Route: 048
  5. NORTRIPTYLINE [Concomitant]
     Indication: MIGRAINE PROPHYLAXIS
     Dosage: AT BEDTIME
     Route: 065
  6. MAGNESIUM [Concomitant]
     Indication: MIGRAINE PROPHYLAXIS
     Dosage: 250MG PER DAY
     Route: 048
  7. RIBOFLAVIN [Concomitant]
     Indication: MIGRAINE PROPHYLAXIS
     Dosage: 100MG PER DAY; THEN 400MG
     Route: 065
  8. RIBOFLAVIN [Concomitant]
     Indication: MIGRAINE PROPHYLAXIS
     Dosage: 400MG
     Route: 065
  9. NAPROXEN SODIUM [Concomitant]
     Indication: MIGRAINE
     Dosage: AS NEEDED
     Route: 065
  10. NADOLOL [Concomitant]
     Indication: MIGRAINE PROPHYLAXIS
     Dosage: 20MG PER DAY
     Route: 065

REACTIONS (7)
  - Electrocardiogram QT prolonged [Recovered/Resolved]
  - Torsade de pointes [Recovered/Resolved]
  - Myocardial ischaemia [Recovering/Resolving]
  - Arteriospasm coronary [Recovering/Resolving]
  - Chest pain [Unknown]
  - Chest discomfort [Unknown]
  - Chest pain [Unknown]
